FAERS Safety Report 25412043 (Version 1)
Quarter: 2025Q2

REPORT INFORMATION
  Report Type: Spontaneous
  Country: RU (occurrence: RU)
  Receive Date: 20250609
  Receipt Date: 20250609
  Transmission Date: 20250717
  Serious: Yes (Other)
  Sender: ABBVIE
  Company Number: RU-RICHTER-2025-GR-006404

PATIENT
  Age: 16 Year
  Sex: Female
  Weight: 54 kg

DRUGS (4)
  1. CARIPRAZINE [Suspect]
     Active Substance: CARIPRAZINE
     Indication: Thinking abnormal
     Dosage: THREE MILLIGRAMS ONCE A DAY^?END DATE: IN MAY 2025
     Route: 048
     Dates: start: 20250513
  2. CARIPRAZINE [Suspect]
     Active Substance: CARIPRAZINE
     Indication: Thinking abnormal
     Route: 048
     Dates: start: 202505
  3. MIRTAZAPINE [Concomitant]
     Active Substance: MIRTAZAPINE
     Indication: Product used for unknown indication
     Dosage: 7.5 MILLIGRAMS ONCE A DAY
     Route: 048
     Dates: start: 20250429
  4. VENLAFAXINE [Concomitant]
     Active Substance: VENLAFAXINE HYDROCHLORIDE
     Indication: Product used for unknown indication
     Dosage: 75 MILLIGRAMS TWICE A DAY
     Route: 048
     Dates: start: 20250430

REACTIONS (3)
  - Micturition disorder [Recovering/Resolving]
  - Product use issue [Unknown]
  - Product use in unapproved indication [Unknown]

NARRATIVE: CASE EVENT DATE: 20250513
